FAERS Safety Report 7922770-8 (Version None)
Quarter: 2011Q4

REPORT INFORMATION
  Report Type: 
  Country: None (occurrence: None)
  Receive Date: 20111117
  Receipt Date: 20110902
  Transmission Date: 20120403
  Serious: No
  Sender: FDA-Public Use
  Company Number: US-ALLERGAN-1111702US

PATIENT
  Age: 49 Year
  Sex: Female
  Weight: 47.619 kg

DRUGS (3)
  1. TRAVATAN Z [Concomitant]
     Indication: GLAUCOMA
  2. COMBIGAN [Suspect]
     Indication: GLAUCOMA
     Dosage: 2 GTT, BID
     Route: 047
     Dates: start: 20101201
  3. COMBIGAN [Suspect]
     Dosage: 2 GTT, BID
     Route: 047
     Dates: start: 20100201, end: 20100501

REACTIONS (7)
  - THERAPEUTIC RESPONSE UNEXPECTED [None]
  - DECREASED APPETITE [None]
  - WEIGHT DECREASED [None]
  - LIBIDO INCREASED [None]
  - BLOOD PRESSURE DECREASED [None]
  - SOMNOLENCE [None]
  - HEART RATE DECREASED [None]
